FAERS Safety Report 6547014-3 (Version None)
Quarter: 2010Q1

REPORT INFORMATION
  Report Type: 
  Country: None (occurrence: None)
  Receive Date: 20100122
  Receipt Date: 20100118
  Transmission Date: 20100710
  Serious: Yes (Hospitalization)
  Sender: FDA-Public Use
  Company Number: B0626608A

PATIENT
  Sex: Male

DRUGS (6)
  1. AUGMENTIN '125' [Suspect]
     Indication: LUNG INFECTION
     Dosage: 1G THREE TIMES PER DAY
     Route: 048
     Dates: start: 20091019, end: 20091019
  2. SERETIDE [Concomitant]
     Route: 065
  3. BISOPROLOL FUMARATE [Concomitant]
     Route: 065
  4. KARDEGIC [Concomitant]
     Route: 065
  5. PERINDOPRIL [Concomitant]
     Route: 065
  6. METFORMIN HCL [Concomitant]
     Route: 065

REACTIONS (3)
  - PRURITUS [None]
  - RASH ERYTHEMATOUS [None]
  - SCAR [None]
